FAERS Safety Report 10203956 (Version 2)
Quarter: 2014Q2

REPORT INFORMATION
  Report Type: Spontaneous
  Country: CH (occurrence: CH)
  Receive Date: 20140529
  Receipt Date: 20140529
  Transmission Date: 20141212
  Serious: Yes (Hospitalization)
  Sender: FDA-Public Use
  Company Number: PHHY2014CH056431

PATIENT
  Age: 89 Year
  Sex: Male

DRUGS (13)
  1. SINTROM [Suspect]
     Indication: ATRIAL FIBRILLATION
     Route: 048
  2. SIMCORA [Suspect]
     Indication: LIPIDS ABNORMAL
     Dosage: 20 MG, QD
     Route: 048
  3. INDERAL [Interacting]
     Indication: ATRIAL FIBRILLATION
     Dosage: 80 MG, BID DAY 1
     Route: 048
  4. INDERAL [Interacting]
     Dosage: 80 MG A DAY 2
     Route: 048
  5. COSOPT [Interacting]
     Indication: GLAUCOMA
     Dosage: 1 DRP, BID
     Route: 047
  6. COAPROVEL [Interacting]
     Indication: CARDIAC FAILURE
     Dosage: 1 DF (HCTZ 25MG, IRBE 300MG) QD
     Route: 048
  7. LASIX [Interacting]
     Indication: CARDIAC FAILURE
     Dosage: 40 MG, BID
     Route: 048
  8. LASIX [Interacting]
     Dosage: 40 MG A DAY REPLACEMENT
     Route: 048
  9. ALDACTONE [Interacting]
     Indication: CARDIAC FAILURE
     Dosage: 25 MG, QW3 (25 MG OF 2 TO 5 TIMES PER WEEK)
     Route: 048
  10. SPASMO-URGENIN NEO [Interacting]
     Indication: URINARY TRACT DISORDER
     Route: 048
  11. TELFAST [Interacting]
     Dosage: 180 MG, QD
     Route: 048
  12. DICETEL [Concomitant]
     Dosage: 50 MG, QD
     Route: 048
  13. PADMED CIRCOSAN [Concomitant]
     Dosage: 1 DF, TID
     Route: 048

REACTIONS (11)
  - Gait disturbance [Not Recovered/Not Resolved]
  - Fall [Not Recovered/Not Resolved]
  - Therapeutic response increased [Recovered/Resolved]
  - Bradycardia [Recovered/Resolved]
  - Hypotension [Recovered/Resolved]
  - Chest pain [Recovered/Resolved]
  - Cardiac failure [Recovered/Resolved]
  - Hyponatraemia [Recovered/Resolved]
  - Cognitive disorder [Not Recovered/Not Resolved]
  - Dyspnoea [Recovered/Resolved]
  - Malaise [Recovered/Resolved]
